FAERS Safety Report 14195016 (Version 1)
Quarter: 2017Q4

REPORT INFORMATION
  Report Type: Spontaneous
  Country: US (occurrence: US)
  Receive Date: 20171116
  Receipt Date: 20171116
  Transmission Date: 20180321
  Serious: Yes (Hospitalization, Other)
  Sender: FDA-Public Use
  Company Number: US-009507513-1109USA01508

PATIENT
  Sex: Female

DRUGS (13)
  1. ALENDRONATE SODIUM. [Suspect]
     Active Substance: ALENDRONATE SODIUM
     Indication: OSTEOPENIA
     Dosage: 70 MG, QW
     Route: 048
     Dates: start: 200803, end: 20101104
  2. ALENDRONATE SODIUM. [Suspect]
     Active Substance: ALENDRONATE SODIUM
     Dosage: 70 MG, QW
     Route: 048
     Dates: start: 20110125
  3. DIOVAN [Concomitant]
     Active Substance: VALSARTAN
     Indication: BLOOD PRESSURE MEASUREMENT
     Dosage: 160 MG, QD
     Route: 048
     Dates: start: 1995
  4. FOSAMAX [Suspect]
     Active Substance: ALENDRONATE SODIUM
     Indication: OSTEOPENIA
     Dosage: 10 MG, QD
     Route: 048
     Dates: start: 19980409, end: 2000
  5. CALCIUM (UNSPECIFIED) [Concomitant]
     Active Substance: CALCIUM
     Dates: start: 1990
  6. PRILOSEC [Concomitant]
     Active Substance: OMEPRAZOLE MAGNESIUM
     Indication: DYSPEPSIA
     Dosage: 20 MG, QD
     Route: 048
     Dates: start: 2005
  7. MAXZIDE [Concomitant]
     Active Substance: HYDROCHLOROTHIAZIDE\TRIAMTERENE
     Indication: DIURETIC THERAPY
     Dosage: 37.5-25
     Route: 048
     Dates: start: 2000
  8. MK-9039 [Concomitant]
     Dosage: 800 ?G, QD
     Route: 048
     Dates: start: 1990
  9. FOSAMAX [Suspect]
     Active Substance: ALENDRONATE SODIUM
     Indication: OSTEOPENIA
     Dosage: 70 MG, QW
     Route: 048
     Dates: start: 2000, end: 201003
  10. MK-9278 [Concomitant]
     Active Substance: VITAMINS
     Route: 048
     Dates: start: 1990
  11. OMEGA-3 MARINE TRIGLYCERIDES [Concomitant]
     Active Substance: FISH OIL
     Dosage: 1000 MG, QD
     Route: 048
     Dates: start: 1990
  12. SIMVASTATIN. [Concomitant]
     Active Substance: SIMVASTATIN
     Indication: BLOOD CHOLESTEROL
     Dosage: 20 MG, HS
     Route: 048
     Dates: start: 1993
  13. MK-2933 [Concomitant]
     Indication: HYPERTENSION

REACTIONS (134)
  - Calcinosis [Unknown]
  - Dehydration [Unknown]
  - Carpal tunnel syndrome [Unknown]
  - Muscle spasms [Unknown]
  - Peripheral artery stenosis [Unknown]
  - Vascular calcification [Unknown]
  - Tooth disorder [Unknown]
  - Psoriasis [Not Recovered/Not Resolved]
  - Groin pain [Unknown]
  - Hypercholesterolaemia [Unknown]
  - Varicose vein [Unknown]
  - Fall [Unknown]
  - Dizziness [Unknown]
  - Poor quality sleep [Recovering/Resolving]
  - Humerus fracture [Unknown]
  - Drug ineffective [Unknown]
  - Adenoidal hypertrophy [Unknown]
  - Oral disorder [Unknown]
  - Lip blister [Unknown]
  - Sciatica [Unknown]
  - Meniscus injury [Unknown]
  - Tooth fracture [Unknown]
  - Drug hypersensitivity [Unknown]
  - Osteoarthritis [Unknown]
  - Urinary tract infection [Unknown]
  - Upper respiratory tract infection [Unknown]
  - Foot deformity [Unknown]
  - Tendonitis [Unknown]
  - Tendonitis [Unknown]
  - Tooth fracture [Unknown]
  - Femur fracture [Unknown]
  - Muscle strain [Unknown]
  - Varicose vein [Unknown]
  - Malaise [Unknown]
  - Sinus congestion [Unknown]
  - Gingival bleeding [Unknown]
  - Haemorrhoids [Unknown]
  - Hiatus hernia [Unknown]
  - Salivary gland mucocoele [Unknown]
  - Diverticulum [Unknown]
  - Tooth fracture [Unknown]
  - Paraesthesia [Unknown]
  - Subclavian artery stenosis [Unknown]
  - Tendonitis [Unknown]
  - Neuropathy peripheral [Not Recovered/Not Resolved]
  - Joint effusion [Unknown]
  - Arthritis [Unknown]
  - Tooth fracture [Unknown]
  - Neuropathy peripheral [Unknown]
  - Tonsillar disorder [Unknown]
  - Hypotension [Unknown]
  - Soft tissue foreign body [Unknown]
  - Dizziness [Unknown]
  - Contusion [Unknown]
  - Tonsillar hypertrophy [Unknown]
  - Cholelithiasis [Unknown]
  - Oral disorder [Unknown]
  - Lipoma [Unknown]
  - Intervertebral disc degeneration [Unknown]
  - Costochondritis [Unknown]
  - Arthralgia [Unknown]
  - Musculoskeletal chest pain [Unknown]
  - Syncope [Unknown]
  - Drug intolerance [Unknown]
  - Anxiety [Unknown]
  - Meniscus injury [Unknown]
  - Red blood cell count decreased [Unknown]
  - Sinus congestion [Unknown]
  - Ear disorder [Unknown]
  - Fall [Unknown]
  - Joint injury [Unknown]
  - Renal failure [Unknown]
  - Fatigue [Unknown]
  - Angiolipoma [Unknown]
  - Neuropathy peripheral [Unknown]
  - Artificial crown procedure [Unknown]
  - Cyst [Unknown]
  - Bursitis [Unknown]
  - Malabsorption [Unknown]
  - Bronchitis [Unknown]
  - Left ventricular hypertrophy [Unknown]
  - Carotid bruit [Unknown]
  - Stitch abscess [Unknown]
  - Bone disorder [Unknown]
  - Cardiac disorder [Unknown]
  - Gingival bleeding [Unknown]
  - Diverticulum [Unknown]
  - Macule [Unknown]
  - Tooth loss [Unknown]
  - Paraesthesia [Unknown]
  - Dupuytren^s contracture [Unknown]
  - Urinary tract infection [Unknown]
  - Pruritus generalised [Unknown]
  - Gingival swelling [Unknown]
  - Gingival bleeding [Unknown]
  - Tooth disorder [Unknown]
  - Stasis dermatitis [Unknown]
  - Hip fracture [Unknown]
  - Haemorrhoids [Unknown]
  - Inflammation [Unknown]
  - Trigger finger [Unknown]
  - Gastroenteritis [Unknown]
  - Foreign body [Unknown]
  - Cellulitis [Recovering/Resolving]
  - Neck pain [Unknown]
  - Headache [Unknown]
  - Arthritis [Unknown]
  - Tooth disorder [Unknown]
  - Oral disorder [Unknown]
  - Dry mouth [Unknown]
  - Gingival bleeding [Unknown]
  - Haematochezia [Unknown]
  - Pulmonary function test abnormal [Unknown]
  - Ventricular extrasystoles [Unknown]
  - Immunosuppression [Unknown]
  - Psoriatic arthropathy [Unknown]
  - Osteoarthritis [Unknown]
  - Low turnover osteopathy [Unknown]
  - Blood glucose increased [Unknown]
  - Hypertension [Unknown]
  - Gastroenteritis [Unknown]
  - Adverse event [Unknown]
  - Pneumonia legionella [Unknown]
  - Colitis ischaemic [Unknown]
  - Dyspepsia [Unknown]
  - Tooth deposit [Unknown]
  - Psoriasis [Unknown]
  - Peripheral vascular disorder [Unknown]
  - Leriche syndrome [Unknown]
  - Supraventricular extrasystoles [Unknown]
  - Patellofemoral pain syndrome [Unknown]
  - Thrombophlebitis [Unknown]
  - Spinal column stenosis [Unknown]
  - Haemorrhagic anaemia [Unknown]

NARRATIVE: CASE EVENT DATE: 19980413
